FAERS Safety Report 20330043 (Version 1)
Quarter: 2022Q1

REPORT INFORMATION
  Report Type: Spontaneous
  Country: US (occurrence: US)
  Receive Date: 20220113
  Receipt Date: 20220113
  Transmission Date: 20220423
  Serious: Yes (Hospitalization, Other)
  Sender: FDA-Public Use
  Company Number: US-MICRO LABS LIMITED-ML2021-00959

PATIENT
  Age: 54 Year
  Sex: Male

DRUGS (10)
  1. APIXABAN [Suspect]
     Active Substance: APIXABAN
     Indication: Cardiogenic shock
  2. AMIODARONE [Suspect]
     Active Substance: AMIODARONE
     Indication: Cardiogenic shock
     Route: 040
  3. AMIODARONE [Suspect]
     Active Substance: AMIODARONE
     Dosage: FOR 6 H
     Route: 041
  4. AMIODARONE [Suspect]
     Active Substance: AMIODARONE
     Route: 041
  5. AMIODARONE [Suspect]
     Active Substance: AMIODARONE
     Route: 048
  6. ASPIRIN [Suspect]
     Active Substance: ASPIRIN
     Indication: Cardiogenic shock
  7. CLOPIDOGREL [Suspect]
     Active Substance: CLOPIDOGREL BISULFATE
     Indication: Cardiogenic shock
  8. HEPARIN [Concomitant]
     Active Substance: HEPARIN SODIUM
     Indication: Cardiogenic shock
     Route: 042
  9. MILRINONE [Concomitant]
     Active Substance: MILRINONE
     Indication: Cardiogenic shock
     Route: 042
  10. NOREPINEPHRINE [Concomitant]
     Active Substance: NOREPINEPHRINE
     Indication: Cardiogenic shock
     Route: 041

REACTIONS (2)
  - Drug interaction [Unknown]
  - Pericardial haemorrhage [Recovered/Resolved]
